FAERS Safety Report 5902800-5 (Version None)
Quarter: 2008Q3

REPORT INFORMATION
  Report Type: 
  Country: None (occurrence: None)
  Receive Date: 20080929
  Receipt Date: 20080929
  Transmission Date: 20090109
  Serious: Yes (Other)
  Sender: FDA-Public Use
  Company Number: None

PATIENT
  Age: 60 Year
  Sex: Female
  Weight: 77.1115 kg

DRUGS (1)
  1. CYMBALTA [Suspect]
     Indication: NEURALGIA
     Dosage: BETWEEN 2 AND 10 GRANULES BID PO
     Route: 048
     Dates: start: 20080618, end: 20080620

REACTIONS (20)
  - ABDOMINAL DISCOMFORT [None]
  - ASTHENIA [None]
  - BALANCE DISORDER [None]
  - BLOOD PRESSURE DECREASED [None]
  - COORDINATION ABNORMAL [None]
  - DIARRHOEA [None]
  - DISTURBANCE IN ATTENTION [None]
  - FALL [None]
  - HEART RATE DECREASED [None]
  - HYPOTONIA [None]
  - MOVEMENT DISORDER [None]
  - MUSCLE DISORDER [None]
  - NAUSEA [None]
  - PARKINSON'S DISEASE [None]
  - PAROSMIA [None]
  - SEROTONIN SYNDROME [None]
  - SPEECH DISORDER [None]
  - TENSION [None]
  - TRAUMATIC BRAIN INJURY [None]
  - VOMITING [None]
